FAERS Safety Report 5404924-8 (Version None)
Quarter: 2007Q3

REPORT INFORMATION
  Report Type: 
  Country: None (occurrence: None)
  Receive Date: 20070801
  Receipt Date: 20070801
  Transmission Date: 20080115
  Serious: Yes (Hospitalization)
  Sender: FDA-Public Use
  Company Number: None

PATIENT
  Age: 70 Year
  Sex: Male

DRUGS (1)
  1. PHENYTOIN [Suspect]
     Indication: CONVULSION
     Dosage: N/AMG  EVERY DAY  PO
     Route: 048
     Dates: start: 20070620, end: 20070730

REACTIONS (4)
  - CONFUSIONAL STATE [None]
  - DRUG LEVEL INCREASED [None]
  - DYSARTHRIA [None]
  - SEDATION [None]
